FAERS Safety Report 6220256-2 (Version None)
Quarter: 2009Q2

REPORT INFORMATION
  Report Type: 
  Country: None (occurrence: None)
  Receive Date: 20090605
  Receipt Date: 20090525
  Transmission Date: 20091009
  Serious: Yes (Hospitalization)
  Sender: FDA-Public Use
  Company Number: 2009EU001814

PATIENT
  Sex: Male

DRUGS (6)
  1. PROGRAF [Suspect]
     Indication: RENAL TRANSPLANT
     Dosage: 3 MG, BID, ORAL; 3.5 MG, BID, ORAL; 2 MG, BID, ORAL
     Route: 048
     Dates: start: 20050701
  2. PROGRAF [Suspect]
     Indication: RENAL TRANSPLANT
     Dosage: 3 MG, BID, ORAL; 3.5 MG, BID, ORAL; 2 MG, BID, ORAL
     Route: 048
     Dates: start: 20050819
  3. PROGRAF [Suspect]
     Indication: RENAL TRANSPLANT
     Dosage: 3 MG, BID, ORAL; 3.5 MG, BID, ORAL; 2 MG, BID, ORAL
     Route: 048
     Dates: start: 20050827
  4. PROGRAF [Suspect]
     Indication: RENAL TRANSPLANT
     Dosage: 3 MG, BID, ORAL; 3.5 MG, BID, ORAL; 2 MG, BID, ORAL
     Route: 048
     Dates: start: 20051117
  5. PROGRAF [Suspect]
     Indication: RENAL TRANSPLANT
     Dosage: 3 MG, BID, ORAL; 3.5 MG, BID, ORAL; 2 MG, BID, ORAL
     Route: 048
     Dates: start: 20051201
  6. PROGRAF [Suspect]
     Indication: RENAL TRANSPLANT
     Dosage: 3 MG, BID, ORAL; 3.5 MG, BID, ORAL; 2 MG, BID, ORAL
     Route: 048
     Dates: start: 20051222

REACTIONS (7)
  - CLAVICLE FRACTURE [None]
  - LOSS OF CONSCIOUSNESS [None]
  - LOWER LIMB FRACTURE [None]
  - PETIT MAL EPILEPSY [None]
  - ROAD TRAFFIC ACCIDENT [None]
  - SOMNAMBULISM [None]
  - TREMOR [None]
